FAERS Safety Report 9007302 (Version 1)
Quarter: 2013Q1

REPORT INFORMATION
  Report Type: Spontaneous
  Country: GR (occurrence: GR)
  Receive Date: 20130110
  Receipt Date: 20130110
  Transmission Date: 20140127
  Serious: Yes (Death, Hospitalization)
  Sender: FDA-Public Use
  Company Number: GR-MYLANLABS-2013S1000234

PATIENT
  Sex: Male

DRUGS (3)
  1. BLEOMYCIN [Suspect]
     Indication: TESTIS CANCER
     Dosage: 30MG D1+8+15 Q3W
     Route: 065
  2. ETOPOSIDE [Suspect]
     Indication: TESTIS CANCER
     Dosage: 165 MG/M2 D1-3 Q3W
     Route: 042
  3. CISPLATIN [Suspect]
     Indication: TESTIS CANCER
     Dosage: 50 MG/M2 D1-2 Q3W
     Route: 065

REACTIONS (5)
  - Pancytopenia [Fatal]
  - Haemoptysis [Fatal]
  - Dyspnoea [Fatal]
  - Pyrexia [Fatal]
  - Haemorrhage [Fatal]
